FAERS Safety Report 4641159-0 (Version None)
Quarter: 2005Q2

REPORT INFORMATION
  Report Type: 
  Country: None (occurrence: None)
  Receive Date: 20050421
  Receipt Date: 20031201
  Transmission Date: 20051028
  Serious: No
  Sender: FDA-Public Use
  Company Number: US-GLAXOSMITHKLINE-A0441433A

PATIENT
  Age: 38 Year
  Sex: Male

DRUGS (7)
  1. LEXIVA [Suspect]
     Indication: HIV INFECTION
     Dosage: 700MG TWICE PER DAY
     Route: 048
  2. NORVIR [Concomitant]
  3. ZERIT [Concomitant]
  4. EPIVIR [Concomitant]
  5. TRAZODONE HCL [Concomitant]
  6. ALLEGRA [Concomitant]
  7. PRILOSEC [Concomitant]

REACTIONS (2)
  - FATIGUE [None]
  - RASH [None]
